FAERS Safety Report 13571707 (Version 2)
Quarter: 2017Q3

REPORT INFORMATION
  Report Type: Spontaneous
  Country: US (occurrence: US)
  Receive Date: 20170523
  Receipt Date: 20170705
  Transmission Date: 20171127
  Serious: No
  Sender: FDA-Public Use
  Company Number: US-LEO PHARMA-302967

PATIENT
  Sex: Male

DRUGS (1)
  1. DAIVOBET [Suspect]
     Active Substance: BETAMETHASONE DIPROPIONATE\CALCIPOTRIENE
     Indication: PSORIASIS
     Dosage: USED 2.5 MONTHS AGO FOR ABOUT 1 MONTH
     Route: 061

REACTIONS (2)
  - Discomfort [Unknown]
  - Drug ineffective [Unknown]
